FAERS Safety Report 19182688 (Version 3)
Quarter: 2021Q2

REPORT INFORMATION
  Report Type: Report from Study
  Country: US (occurrence: US)
  Receive Date: 20210427
  Receipt Date: 20210624
  Transmission Date: 20210717
  Serious: Yes (Other)
  Sender: FDA-Public Use
  Company Number: US-IPSEN BIOPHARMACEUTICALS, INC.-2021-10150

PATIENT
  Age: 49 Year
  Sex: Male

DRUGS (5)
  1. DYSPORT [Suspect]
     Active Substance: ABOBOTULINUMTOXINA
     Indication: MUSCLE SPASTICITY
     Dosage: 1500 IU (300UNITS ON RIGHT AND 300 UNITS ON THE LEFT. HIP ADDUCTORS(NOS):150 UNITS ON RIGHT AND 150
     Route: 030
     Dates: start: 2021, end: 2021
  2. DYSPORT [Suspect]
     Active Substance: ABOBOTULINUMTOXINA
     Indication: MUSCLE SPASTICITY
  3. DYSPORT [Suspect]
     Active Substance: ABOBOTULINUMTOXINA
     Indication: OFF LABEL USE
  4. DYSPORT [Suspect]
     Active Substance: ABOBOTULINUMTOXINA
     Indication: MUSCLE SPASTICITY
  5. DYSPORT [Suspect]
     Active Substance: ABOBOTULINUMTOXINA
     Indication: MUSCLE SPASTICITY

REACTIONS (5)
  - Muscle spasms [Unknown]
  - Off label use [Unknown]
  - Feeling abnormal [Unknown]
  - Hypoglycaemia [Unknown]
  - Urinary tract infection [Unknown]
